FAERS Safety Report 21110909 (Version 1)
Quarter: 2022Q3

REPORT INFORMATION
  Report Type: Spontaneous
  Country: US (occurrence: None)
  Receive Date: 20220720
  Receipt Date: 20220720
  Transmission Date: 20221026
  Serious: No
  Sender: FDA-Public Use
  Company Number: None

PATIENT
  Sex: Female
  Weight: 60.3 kg

DRUGS (2)
  1. PROMACTA [Suspect]
     Active Substance: ELTROMBOPAG OLAMINE
     Indication: Malignant neoplasm of pleura
     Dosage: FREQUENCY : DAILY;?
     Route: 048
  2. TAGRISSO [Suspect]
     Active Substance: OSIMERTINIB
     Indication: Malignant neoplasm of pleura
     Dosage: FREQUENCY : DAILY;?
     Route: 048
     Dates: start: 20210717

REACTIONS (1)
  - Fatigue [None]
